FAERS Safety Report 6245236-2 (Version None)
Quarter: 2009Q2

REPORT INFORMATION
  Report Type: 
  Country: None (occurrence: None)
  Receive Date: 20090623
  Receipt Date: 20090623
  Transmission Date: 20091009
  Serious: No
  Sender: FDA-Public Use
  Company Number: None

PATIENT
  Age: 58 Year
  Sex: Female
  Weight: 81.6475 kg

DRUGS (1)
  1. ACTONEL [Suspect]
     Indication: OSTEOPENIA
     Dosage: 35 MG ONCE WEEKLY PO
     Route: 048
     Dates: start: 20090607, end: 20090614

REACTIONS (7)
  - ARTHRALGIA [None]
  - BONE PAIN [None]
  - DYSSTASIA [None]
  - EYE HAEMORRHAGE [None]
  - JOINT SWELLING [None]
  - MYALGIA [None]
  - PHOTOPHOBIA [None]
